FAERS Safety Report 7590561-6 (Version None)
Quarter: 2011Q3

REPORT INFORMATION
  Report Type: 
  Country: None (occurrence: None)
  Receive Date: 20110705
  Receipt Date: 20110622
  Transmission Date: 20111222
  Serious: Yes (Hospitalization, Other)
  Sender: FDA-Public Use
  Company Number: US-ELI_LILLY_AND_COMPANY-US201009004875

PATIENT
  Sex: Female

DRUGS (5)
  1. FORTEO [Suspect]
     Indication: OSTEOPOROSIS
     Dosage: 20 UG, DAILY (1/D)
     Dates: start: 20100801
  2. FORTEO [Suspect]
     Dosage: 20 UG, QD
  3. FORTEO [Suspect]
     Dosage: 20 UG, DAILY (1/D)
     Route: 065
  4. CARBIDOPA [Concomitant]
     Indication: PARKINSON'S DISEASE
  5. URSODIOL [Concomitant]
     Indication: LIVER DISORDER

REACTIONS (3)
  - HEPATIC HAEMORRHAGE [None]
  - LOSS OF CONSCIOUSNESS [None]
  - INJECTION SITE HAEMATOMA [None]
